FAERS Safety Report 9441371 (Version 1)
Quarter: 2013Q3

REPORT INFORMATION
  Report Type: Spontaneous
  Country: US (occurrence: US)
  Receive Date: 20130805
  Receipt Date: 20130805
  Transmission Date: 20140515
  Serious: No
  Sender: FDA-Public Use
  Company Number: US-US-EMD SERONO, INC.-231612J10USA

PATIENT
  Age: 33 Year
  Sex: Female

DRUGS (2)
  1. REBIF [Suspect]
     Indication: MULTIPLE SCLEROSIS
     Route: 058
     Dates: start: 20100117
  2. LYRICA [Concomitant]
     Indication: PRODUCT USED FOR UNKNOWN INDICATION
     Dates: end: 201002

REACTIONS (7)
  - Oropharyngeal pain [Unknown]
  - Feeling of relaxation [Unknown]
  - Feeling abnormal [Unknown]
  - Chest pain [Recovered/Resolved]
  - Musculoskeletal stiffness [Unknown]
  - Hypoaesthesia [Recovered/Resolved]
  - Depression [Unknown]
